FAERS Safety Report 19069152 (Version 1)
Quarter: 2021Q1

REPORT INFORMATION
  Report Type: Spontaneous
  Country: GB (occurrence: GB)
  Receive Date: 20210329
  Receipt Date: 20210329
  Transmission Date: 20210420
  Serious: Yes (Hospitalization)
  Sender: FDA-Public Use
  Company Number: GB-TEVA-2021-GB-1894287

PATIENT
  Age: 87 Year
  Sex: Male
  Weight: 60 kg

DRUGS (4)
  1. HYOSCINE BUTYLBROMIDE [Concomitant]
     Active Substance: BUTYLSCOPOLAMINE BROMIDE
  2. OMEPRAZOL [Suspect]
     Active Substance: OMEPRAZOLE
     Indication: GASTROOESOPHAGEAL REFLUX DISEASE
     Dosage: 40MG
     Route: 048
     Dates: end: 20210308
  3. ALLOPURINOL. [Concomitant]
     Active Substance: ALLOPURINOL
  4. FENBID [Concomitant]
     Active Substance: IBUPROFEN

REACTIONS (1)
  - Electrolyte imbalance [Recovered/Resolved]
